FAERS Safety Report 14481411 (Version 7)
Quarter: 2019Q3

REPORT INFORMATION
  Report Type: Spontaneous
  Country: FR (occurrence: FR)
  Receive Date: 20180202
  Receipt Date: 20190731
  Transmission Date: 20191004
  Serious: Yes (Hospitalization, Disabling)
  Sender: FDA-Public Use
  Company Number: FR-JNJFOC-20180137325

PATIENT
  Age: 64 Year
  Sex: Female
  Weight: 42 kg

DRUGS (6)
  1. INFLIXIMAB [Suspect]
     Active Substance: INFLIXIMAB
     Indication: ACUTE GRAFT VERSUS HOST DISEASE
     Route: 048
     Dates: start: 20171108
  2. CICLOSPORIN [Suspect]
     Active Substance: CYCLOSPORINE
     Indication: PRODUCT USED FOR UNKNOWN INDICATION
     Route: 048
     Dates: start: 20171107
  3. MYCOPHENOLATE MOFETIL. [Concomitant]
     Active Substance: MYCOPHENOLATE MOFETIL
     Route: 048
     Dates: start: 20171018
  4. MYCOPHENOLATE MOFETIL. [Concomitant]
     Active Substance: MYCOPHENOLATE MOFETIL
     Indication: PROPHYLAXIS
     Route: 048
     Dates: start: 20171018, end: 20171206
  5. INFLIXIMAB, RECOMBINANT [Suspect]
     Active Substance: INFLIXIMAB
     Indication: PRODUCT USED FOR UNKNOWN INDICATION
     Route: 042
  6. RUXOLITINIB [Suspect]
     Active Substance: RUXOLITINIB
     Indication: ACUTE GRAFT VERSUS HOST DISEASE
     Route: 048

REACTIONS (4)
  - Polyomavirus-associated nephropathy [Recovered/Resolved]
  - Urinary tract infection viral [Recovered/Resolved]
  - Renal failure [Recovered/Resolved]
  - Urinary bladder haemorrhage [Recovered/Resolved]

NARRATIVE: CASE EVENT DATE: 20171204
